FAERS Safety Report 8583422-7 (Version None)
Quarter: 2012Q3

REPORT INFORMATION
  Report Type: 
  Country: None (occurrence: None)
  Receive Date: 20120809
  Receipt Date: 20120725
  Transmission Date: 20120928
  Serious: Yes (Other)
  Sender: FDA-Public Use
  Company Number: CHPA2012US016702

PATIENT
  Age: 65 Year
  Sex: Female

DRUGS (6)
  1. ANALGESICS [Concomitant]
     Dosage: UNK, UNK
     Dates: start: 20120301, end: 20120701
  2. BENEFIBER W/ WHEAT DEXTRIN [Suspect]
     Dosage: HALF CAPLET, WITH MEALS
     Route: 048
     Dates: start: 20120301
  3. MAGNESIUM [Concomitant]
     Dosage: 1 DF, BID
     Dates: start: 20120101, end: 20120101
  4. SENNA-MINT WAF [Concomitant]
     Dosage: 2 TABLETS A DAY
     Dates: start: 20120101, end: 20120101
  5. PRILOSEC [Concomitant]
     Dosage: UNK, UNK
     Dates: start: 20120724
  6. BENEFIBER W/ WHEAT DEXTRIN [Suspect]
     Indication: CONSTIPATION
     Dosage: HALF CAPLET, TWICE DAILY
     Route: 048
     Dates: start: 20100101, end: 20120301

REACTIONS (7)
  - OFF LABEL USE [None]
  - EAR INFECTION [None]
  - FOOD INTOLERANCE [None]
  - EAR PAIN [None]
  - WRONG TECHNIQUE IN DRUG USAGE PROCESS [None]
  - THERAPEUTIC RESPONSE UNEXPECTED [None]
  - UNDERDOSE [None]
